FAERS Safety Report 18716418 (Version 1)
Quarter: 2021Q1

REPORT INFORMATION
  Report Type: Spontaneous
  Country: ES (occurrence: ES)
  Receive Date: 20210108
  Receipt Date: 20210108
  Transmission Date: 20210419
  Serious: Yes (Hospitalization)
  Sender: FDA-Public Use
  Company Number: ES-STRIDES ARCOLAB LIMITED-2021SP000073

PATIENT
  Age: 50 Year
  Sex: Female

DRUGS (15)
  1. EFAVIRENZ. [Suspect]
     Active Substance: EFAVIRENZ
     Dosage: UNK, TDF/3TC/EFV REGIMEN
     Route: 065
     Dates: start: 20180508, end: 20180518
  2. LAMIVUDINE. [Concomitant]
     Active Substance: LAMIVUDINE
     Dosage: UNK, TENOFOVIR/LAMIVUDINE/NEVIRAPINE REGIMEN
     Route: 065
     Dates: start: 2014, end: 2015
  3. LAMIVUDINE. [Concomitant]
     Active Substance: LAMIVUDINE
     Indication: HIV INFECTION
     Dosage: UNK, STAVUDINE/LAMIVUDINE/NEVIRAPINE REGIMEN
     Route: 065
     Dates: start: 2012, end: 2014
  4. LAMIVUDINE. [Concomitant]
     Active Substance: LAMIVUDINE
     Dosage: UNK, TDF/3TC/EFV REGIMEN
     Route: 065
     Dates: start: 20180508, end: 20180518
  5. LAMIVUDINE. [Concomitant]
     Active Substance: LAMIVUDINE
     Dosage: UNK, TENOFOVIR/LAMIVUDINE/DOLUTEGRAVIR REGIMEN.
     Route: 065
     Dates: start: 20180518
  6. LAMIVUDINE. [Concomitant]
     Active Substance: LAMIVUDINE
     Dosage: UNK, TDF/3TC/EFV REGIMEN
     Route: 065
     Dates: start: 2015, end: 20180123
  7. TENOFOVIR [Concomitant]
     Active Substance: TENOFOVIR
     Dosage: UNK, TENVIR?EM REGIMEN
     Route: 065
     Dates: start: 20180123, end: 20180508
  8. NEVIRAPINE. [Concomitant]
     Active Substance: NEVIRAPINE
     Dosage: UNK, TENOFOVIR/LAMIVUDINE/NEVIRAPINE
     Route: 065
     Dates: start: 2014, end: 2015
  9. EFAVIRENZ. [Suspect]
     Active Substance: EFAVIRENZ
     Indication: HIV INFECTION
     Dosage: UNK, TDF/3TC/EFV REGIMEN
     Route: 065
     Dates: start: 2015, end: 20180123
  10. TENOFOVIR [Concomitant]
     Active Substance: TENOFOVIR
     Indication: HIV INFECTION
     Dosage: UNK, STAVUDINE/LAMIVUDINE/NEVIRAPINE REGIMEN
     Route: 065
     Dates: start: 2014, end: 2015
  11. TENOFOVIR [Concomitant]
     Active Substance: TENOFOVIR
     Dosage: UNK, TDF/3TC/EFV REGIMEN
     Route: 065
     Dates: start: 2015, end: 20180123
  12. STAVUDINE. [Concomitant]
     Active Substance: STAVUDINE
     Indication: HIV INFECTION
     Dosage: UNK, STAVUDINE/LAMIVUDINE/NEVIRAPINE EGIMEN
     Route: 065
     Dates: start: 2012, end: 2014
  13. NEVIRAPINE. [Concomitant]
     Active Substance: NEVIRAPINE
     Indication: HIV INFECTION
     Dosage: UNK, STAVUDINE/LAMIVUDINE/NEVIRAPINE REGIMEN
     Route: 065
     Dates: start: 2012, end: 2014
  14. TENOFOVIR [Concomitant]
     Active Substance: TENOFOVIR
     Dosage: UNK, TDF/3TC/EFV REGIMEN
     Route: 065
     Dates: start: 20180508, end: 20180518
  15. TENOFOVIR [Concomitant]
     Active Substance: TENOFOVIR
     Dosage: UNK, TENOFOVIR/LAMIVUDINE/DOLUTEGRAVIR REGIMEN.
     Route: 065
     Dates: start: 20180518

REACTIONS (1)
  - Haemolytic anaemia [Recovered/Resolved]

NARRATIVE: CASE EVENT DATE: 20180115
